FAERS Safety Report 18748222 (Version 3)
Quarter: 2021Q1

REPORT INFORMATION
  Report Type: Spontaneous
  Country: IT (occurrence: IT)
  Receive Date: 20210116
  Receipt Date: 20210205
  Transmission Date: 20210419
  Serious: Yes (Death, Hospitalization, Other)
  Sender: FDA-Public Use
  Company Number: IT-AMGEN-ITASP2021005449

PATIENT

DRUGS (1)
  1. BLINATUMOMAB [Suspect]
     Active Substance: BLINATUMOMAB
     Indication: ACUTE LYMPHOCYTIC LEUKAEMIA
     Dosage: UNK CYCLICAL, Q4WK (28?DAY CYCLE)
     Route: 065

REACTIONS (7)
  - Unevaluable event [Unknown]
  - Wrong technique in product usage process [Unknown]
  - Device related infection [Unknown]
  - Respiratory failure [Fatal]
  - Pseudomonas infection [Fatal]
  - Product dispensing error [Recovered/Resolved]
  - Drug ineffective [Unknown]
